FAERS Safety Report 6287536-6 (Version None)
Quarter: 2009Q3

REPORT INFORMATION
  Report Type: 
  Country: None (occurrence: None)
  Receive Date: 20090727
  Receipt Date: 20090715
  Transmission Date: 20100115
  Serious: Yes (Hospitalization)
  Sender: FDA-Public Use
  Company Number: 8047043

PATIENT
  Age: 27 Year
  Sex: Female
  Weight: 70.3 kg

DRUGS (5)
  1. CIMZIA [Suspect]
     Indication: CROHN'S DISEASE
     Dosage: 400 MG SC
     Route: 058
     Dates: start: 20090109
  2. OMEPRAZOLE [Concomitant]
  3. CALCIUM WITH VITAMINS D [Concomitant]
  4. CENTRUM [Concomitant]
  5. MULTI-VITAMIN [Concomitant]

REACTIONS (8)
  - ABDOMINAL DISTENSION [None]
  - ALOPECIA [None]
  - DIARRHOEA [None]
  - MYALGIA [None]
  - SMALL INTESTINAL RESECTION [None]
  - VASCULITIS [None]
  - WEIGHT INCREASED [None]
  - ZINC DEFICIENCY [None]
